FAERS Safety Report 19212406 (Version 1)
Quarter: 2021Q2

REPORT INFORMATION
  Report Type: Spontaneous
  Country: NZ (occurrence: NZ)
  Receive Date: 20210504
  Receipt Date: 20210504
  Transmission Date: 20210717
  Serious: Yes (Hospitalization, Other)
  Sender: FDA-Public Use
  Company Number: NZ-MYLANLABS-2021M1025820

PATIENT
  Age: 75 Year
  Sex: Female

DRUGS (4)
  1. MYCOPHENOLATE MOFETIL. [Suspect]
     Active Substance: MYCOPHENOLATE MOFETIL
     Indication: IMMUNOSUPPRESSANT DRUG THERAPY
     Dosage: UNK
     Route: 065
  2. TRIAMCINOLONE ACETONIDE. [Suspect]
     Active Substance: TRIAMCINOLONE ACETONIDE
     Indication: BIRDSHOT CHORIORETINOPATHY
  3. MYCOPHENOLATE MOFETIL. [Suspect]
     Active Substance: MYCOPHENOLATE MOFETIL
     Indication: BIRDSHOT CHORIORETINOPATHY
     Dosage: 1 GRAM, BID
     Route: 065
  4. TRIAMCINOLONE ACETONIDE. [Suspect]
     Active Substance: TRIAMCINOLONE ACETONIDE
     Indication: IMMUNOSUPPRESSANT DRUG THERAPY
     Dosage: 40 MILLIGRAM

REACTIONS (4)
  - Condition aggravated [Not Recovered/Not Resolved]
  - Retinal detachment [Recovered/Resolved]
  - Infective uveitis [Not Recovered/Not Resolved]
  - Eye infection toxoplasmal [Not Recovered/Not Resolved]
